FAERS Safety Report 7166185-1 (Version None)
Quarter: 2010Q4

REPORT INFORMATION
  Report Type: 
  Country: None (occurrence: None)
  Receive Date: 20101216
  Receipt Date: 20101201
  Transmission Date: 20110411
  Serious: Yes (Other)
  Sender: FDA-Public Use
  Company Number: ES-SANOFI-AVENTIS-2010SA075448

PATIENT
  Age: 24 Year
  Sex: Male

DRUGS (3)
  1. FLUDARA [Suspect]
     Indication: BONE MARROW TRANSPLANT
     Dosage: DAYS 1-3 (FC REGIMEN)
     Route: 048
     Dates: start: 20100415, end: 20100418
  2. ANTI-THYMOCYTE GLOBULIN NOS [Suspect]
     Indication: BONE MARROW TRANSPLANT
     Dosage: ON DAY 1 (CHOP REGIMEN)
     Route: 048
     Dates: start: 20100418, end: 20100420
  3. CYCLOPHOSPHAMIDE [Suspect]
     Indication: BONE MARROW TRANSPLANT
     Dosage: ON DAY 1 (CHOP REGIMEN)
     Route: 042
     Dates: start: 20100417, end: 20100418

REACTIONS (2)
  - HEPATITIS [None]
  - HYPERBILIRUBINAEMIA [None]
